FAERS Safety Report 16536358 (Version 1)
Quarter: 2019Q3

REPORT INFORMATION
  Report Type: Report from Study
  Country: US (occurrence: US)
  Receive Date: 20190705
  Receipt Date: 20190705
  Transmission Date: 20191004
  Serious: No
  Sender: FDA-Public Use
  Company Number: US-THERATECHNOLOGIES, INC.-TH-2019-00096

PATIENT

DRUGS (1)
  1. EGRIFTA [Suspect]
     Active Substance: TESAMORELIN
     Dosage: 1 MG MILLIGRAM(S), DAILY DOSE
     Route: 058
     Dates: start: 201906

REACTIONS (2)
  - Injection site pruritus [Unknown]
  - Injection site scar [Unknown]

NARRATIVE: CASE EVENT DATE: 20190701
